FAERS Safety Report 10243046 (Version 2)
Quarter: 2014Q3

REPORT INFORMATION
  Report Type: Spontaneous
  Country: US (occurrence: None)
  Receive Date: 20140613
  Receipt Date: 20140808
  Transmission Date: 20150326
  Serious: Yes (Other)
  Sender: FDA-Public Use
  Company Number: UNT-2014-001656

PATIENT
  Age: 61 Year
  Sex: Male
  Weight: 77.1 kg

DRUGS (2)
  1. REVATIO (SILDENAFIL CITRATE) [Concomitant]
  2. TYVASO [Suspect]
     Active Substance: TREPROSTINIL
     Indication: COR PULMONALE CHRONIC
     Route: 055
     Dates: start: 20130424

REACTIONS (5)
  - Neoplasm malignant [None]
  - Cough [None]
  - Pulmonary oedema [None]
  - Chemotherapy [None]
  - Oral pain [None]
